FAERS Safety Report 17616466 (Version 1)
Quarter: 2020Q2

REPORT INFORMATION
  Report Type: Spontaneous
  Country: GB (occurrence: GB)
  Receive Date: 20200402
  Receipt Date: 20200402
  Transmission Date: 20200713
  Serious: Yes (Death, Other)
  Sender: FDA-Public Use
  Company Number: GB-AMGEN-GBRSP2020051956

PATIENT
  Age: 68 Year
  Sex: Female
  Weight: 76.6 kg

DRUGS (12)
  1. GRANISETRON [Concomitant]
     Active Substance: GRANISETRON
     Dosage: UNK
  2. DOCETAXEL. [Suspect]
     Active Substance: DOCETAXEL
     Indication: BREAST CANCER
     Dosage: 140 MILLIGRAM
     Route: 042
     Dates: start: 20200205, end: 20200205
  3. FILGRASTIM [Concomitant]
     Active Substance: FILGRASTIM
     Dosage: UNK
  4. EPIRUBICIN [Concomitant]
     Active Substance: EPIRUBICIN
     Dosage: UNK
  5. FLUOROURACIL. [Concomitant]
     Active Substance: FLUOROURACIL
     Dosage: UNK
  6. TRASTUZUMAB. [Suspect]
     Active Substance: TRASTUZUMAB
     Indication: BREAST CANCER
     Dosage: 588 MILLIGRAM
     Route: 042
     Dates: start: 20200205, end: 20200205
  7. CYCLOPHOSPHAMIDE. [Concomitant]
     Active Substance: CYCLOPHOSPHAMIDE
     Dosage: UNK
  8. ROLAPITANT [Concomitant]
     Active Substance: ROLAPITANT
     Dosage: UNK
  9. DEXAMETHASONE. [Concomitant]
     Active Substance: DEXAMETHASONE
     Dosage: UNK
  10. LORAZEPAM. [Concomitant]
     Active Substance: LORAZEPAM
     Dosage: UNK
  11. PERTUZUMAB. [Suspect]
     Active Substance: PERTUZUMAB
     Indication: BREAST CANCER
     Dosage: 840 MILLIGRAM
     Route: 042
     Dates: start: 20200205, end: 20200205
  12. METOCLOPRAMIDE. [Concomitant]
     Active Substance: METOCLOPRAMIDE
     Dosage: UNK

REACTIONS (3)
  - Respiratory symptom [Fatal]
  - Acute interstitial pneumonitis [Fatal]
  - Off label use [Unknown]

NARRATIVE: CASE EVENT DATE: 20200205
